FAERS Safety Report 7752013-X (Version None)
Quarter: 2011Q3

REPORT INFORMATION
  Report Type: 
  Country: None (occurrence: None)
  Receive Date: 20110913
  Receipt Date: 20110901
  Transmission Date: 20111222
  Serious: Yes (Death)
  Sender: FDA-Public Use
  Company Number: 2011MA006363

PATIENT
  Age: 39 Year
  Sex: Male

DRUGS (9)
  1. OXAZEPAM [Suspect]
     Dosage: PO
     Route: 048
     Dates: start: 20060101, end: 20101101
  2. THC [Concomitant]
  3. CODEINE SULFATE [Concomitant]
  4. VENLAFAXINE HYDROCHLORIDE [Concomitant]
  5. MORPHINE [Concomitant]
  6. ZYPREXA [Suspect]
     Indication: DEPRESSION SUICIDAL
     Dosage: 20 MG;BID;PO
     Route: 048
     Dates: start: 20101122, end: 20110117
  7. PREGABALIN [Suspect]
     Indication: SCHIZOPHRENIA
     Dosage: PO
     Route: 048
     Dates: start: 20101201, end: 20110117
  8. PREGABALIN [Suspect]
     Indication: DEPRESSION
     Dosage: PO
     Route: 048
     Dates: start: 20101201, end: 20110117
  9. DIAZEPAM [Concomitant]

REACTIONS (7)
  - EOSINOPHILIC MYOCARDITIS [None]
  - TOXICITY TO VARIOUS AGENTS [None]
  - EMPHYSEMA [None]
  - HYPERSENSITIVITY [None]
  - BRONCHITIS CHRONIC [None]
  - PULMONARY OEDEMA [None]
  - ARRHYTHMIA [None]
